FAERS Safety Report 20650474 (Version 1)
Quarter: 2022Q1

REPORT INFORMATION
  Report Type: Report from Study
  Country: JP (occurrence: JP)
  Receive Date: 20220329
  Receipt Date: 20220329
  Transmission Date: 20220423
  Serious: Yes (Hospitalization, Other)
  Sender: FDA-Public Use
  Company Number: JP-BRISTOL-MYERS SQUIBB COMPANY-2022-011831

PATIENT
  Age: 58 Year
  Sex: Male
  Weight: 85.3 kg

DRUGS (2)
  1. OPDIVO [Suspect]
     Active Substance: NIVOLUMAB
     Indication: Non-small cell lung cancer recurrent
     Dosage: 2 TIMES
     Route: 041
     Dates: start: 20210414, end: 20210531
  2. YERVOY [Suspect]
     Active Substance: IPILIMUMAB
     Indication: Non-small cell lung cancer recurrent
     Dosage: 2 TIMES
     Route: 041
     Dates: start: 20210414, end: 20210531

REACTIONS (7)
  - Diarrhoea [Recovered/Resolved]
  - Prerenal failure [Recovering/Resolving]
  - Malignant neoplasm progression [Unknown]
  - Seizure [Recovered/Resolved]
  - Pyrexia [Unknown]
  - Eating disorder [Unknown]
  - Cytomegalovirus enterocolitis [Unknown]

NARRATIVE: CASE EVENT DATE: 20210609
